FAERS Safety Report 10578792 (Version 1)
Quarter: 2014Q4

REPORT INFORMATION
  Report Type: Spontaneous
  Country: IE (occurrence: IE)
  Receive Date: 20141112
  Receipt Date: 20141112
  Transmission Date: 20150529
  Serious: Yes (Death, Life-Threatening, Other)
  Sender: FDA-Public Use
  Company Number: IE-JNJFOC-20141102841

PATIENT
  Age: 89 Year
  Sex: Female
  Weight: 45 kg

DRUGS (13)
  1. XARELTO [Suspect]
     Active Substance: RIVAROXABAN
     Indication: ATRIAL FIBRILLATION
     Route: 048
     Dates: start: 20140801, end: 20140808
  2. METOPROLOL TARTRATE. [Concomitant]
     Active Substance: METOPROLOL TARTRATE
     Indication: ATRIAL FIBRILLATION
     Route: 065
     Dates: start: 20090108, end: 20140815
  3. ZIMOVANE [Concomitant]
     Active Substance: ZOPICLONE
     Indication: SLEEP DISORDER
     Route: 065
     Dates: start: 20091127, end: 20140815
  4. LEXAPRO [Suspect]
     Active Substance: ESCITALOPRAM OXALATE
     Indication: PRODUCT USED FOR UNKNOWN INDICATION
     Route: 048
     Dates: start: 20140205, end: 20140809
  5. CORDARONE [Concomitant]
     Active Substance: AMIODARONE HYDROCHLORIDE
     Indication: ATRIAL FIBRILLATION
     Route: 065
     Dates: start: 20090108, end: 20140815
  6. ATORVASTATIN CALCIUM. [Concomitant]
     Active Substance: ATORVASTATIN CALCIUM
     Indication: HYPERCHOLESTEROLAEMIA
     Route: 065
     Dates: start: 20090108, end: 20140815
  7. COZAAR [Concomitant]
     Active Substance: LOSARTAN POTASSIUM
     Indication: CARDIOVASCULAR DISORDER
     Route: 065
     Dates: start: 20090108, end: 20140815
  8. GALFER [Concomitant]
     Active Substance: IRON
     Indication: ANAEMIA
     Route: 065
     Dates: start: 20130410, end: 20140815
  9. PROTIUM [Concomitant]
     Indication: PRODUCT USED FOR UNKNOWN INDICATION
     Route: 065
     Dates: start: 20090702, end: 20140815
  10. XARELTO [Suspect]
     Active Substance: RIVAROXABAN
     Indication: CEREBROVASCULAR ACCIDENT PROPHYLAXIS
     Route: 048
     Dates: start: 20140801, end: 20140808
  11. PARACETAMOL [Concomitant]
     Active Substance: ACETAMINOPHEN
     Indication: PAIN
     Route: 065
     Dates: start: 20090108, end: 20140815
  12. PROTIUM [Concomitant]
     Indication: PRODUCT USED FOR UNKNOWN INDICATION
     Route: 065
     Dates: start: 20090702, end: 20140815
  13. LANOXIN [Concomitant]
     Active Substance: DIGOXIN
     Indication: ATRIAL FIBRILLATION
     Route: 065
     Dates: start: 20090108, end: 20140815

REACTIONS (5)
  - Dysphagia [Unknown]
  - Pneumonia [Fatal]
  - Gastrointestinal haemorrhage [Unknown]
  - Sepsis [Fatal]
  - Tachycardia [Unknown]

NARRATIVE: CASE EVENT DATE: 201408
